FAERS Safety Report 9427689 (Version 1)
Quarter: 2013Q3

REPORT INFORMATION
  Report Type: Report from Study
  Country: US (occurrence: US)
  Receive Date: 20130730
  Receipt Date: 20130730
  Transmission Date: 20140515
  Serious: No
  Sender: FDA-Public Use
  Company Number: US-ABBOTT-12P-163-0997709-00

PATIENT
  Age: 55 Year
  Sex: Female
  Weight: 53.12 kg

DRUGS (9)
  1. NIASPAN (COATED) [Suspect]
     Indication: BLOOD CHOLESTEROL
  2. NIASPAN (COATED) [Suspect]
     Dosage: 1000 MG DAILY
     Route: 048
  3. ACELLA [Concomitant]
     Indication: PRODUCT USED FOR UNKNOWN INDICATION
     Dosage: 50 MG DAILY
     Route: 048
  4. ENTERIC ASPIRIN [Concomitant]
     Indication: PRODUCT USED FOR UNKNOWN INDICATION
     Dosage: 81 MG DAILY
     Route: 048
  5. COQOMEGA [Concomitant]
     Indication: PRODUCT USED FOR UNKNOWN INDICATION
  6. IODINE [Concomitant]
     Indication: PRODUCT USED FOR UNKNOWN INDICATION
     Dosage: 12.5 MG DAILY
     Route: 048
  7. DHDA [Concomitant]
     Indication: PRODUCT USED FOR UNKNOWN INDICATION
  8. D3/5 BIOTECH [Concomitant]
     Indication: PRODUCT USED FOR UNKNOWN INDICATION
  9. HORMONE REPLACEMENT THERAPY [Concomitant]
     Indication: HORMONE REPLACEMENT THERAPY

REACTIONS (6)
  - Headache [Recovered/Resolved]
  - Flushing [Recovered/Resolved]
  - Paraesthesia [Recovered/Resolved]
  - Pruritus [Recovered/Resolved]
  - Feeling hot [Recovered/Resolved]
  - Migraine [Recovered/Resolved]
